FAERS Safety Report 4400567-3 (Version None)
Quarter: 2004Q3

REPORT INFORMATION
  Report Type: 
  Country: None (occurrence: None)
  Receive Date: 20040716
  Receipt Date: 20040716
  Transmission Date: 20050211
  Serious: Yes (Death)
  Sender: FDA-Public Use
  Company Number: None

PATIENT
  Sex: Male
  Weight: 87.8 kg

DRUGS (6)
  1. DAUNORUBICIN HCL [Suspect]
     Indication: ACUTE MYELOID LEUKAEMIA
     Dosage: 90MG/M2  3 DAYS  INTRAVENOUS
     Route: 042
     Dates: start: 20040701, end: 20040707
  2. CYTARABINE [Suspect]
     Indication: ACUTE MYELOID LEUKAEMIA
     Dosage: 100MG/M2  7 DAYS  INTRAVENOUS
     Route: 042
     Dates: start: 20040701, end: 20040707
  3. MEDROL [Concomitant]
  4. IRON SULFATETHIAMIN COMPOUND TAB [Concomitant]
  5. COUGH SYRUP [Concomitant]
  6. ACETAMINOPHEN [Concomitant]

REACTIONS (1)
  - SEPTIC SHOCK [None]
